FAERS Safety Report 7372066-0 (Version None)
Quarter: 2011Q1

REPORT INFORMATION
  Report Type: 
  Country: None (occurrence: None)
  Receive Date: 20110324
  Receipt Date: 20110318
  Transmission Date: 20110831
  Serious: Yes (Hospitalization)
  Sender: FDA-Public Use
  Company Number: US-B.I. PHARMACEUTICALS,INC./RIDGEFIELD-2011-BP-02724BP

PATIENT
  Age: 71 Year
  Sex: Female

DRUGS (2)
  1. AMIODARONE HCL [Concomitant]
     Indication: SINUS DISORDER
     Dates: start: 20110125
  2. PRADAXA [Suspect]
     Indication: ATRIAL FIBRILLATION
     Dosage: 300 MG
     Route: 048
     Dates: start: 20110201, end: 20110205

REACTIONS (7)
  - GASTROINTESTINAL HAEMORRHAGE [None]
  - SPLENIC RUPTURE [None]
  - CHOLELITHIASIS [None]
  - HAEMORRHAGE [None]
  - RECTAL HAEMORRHAGE [None]
  - COLECTOMY TOTAL [None]
  - CHOLECYSTITIS CHRONIC [None]
